FAERS Safety Report 8486969-7 (Version None)
Quarter: 2012Q3

REPORT INFORMATION
  Report Type: 
  Country: None (occurrence: None)
  Receive Date: 20120704
  Receipt Date: 20120626
  Transmission Date: 20120928
  Serious: Yes (Life-Threatening)
  Sender: FDA-Public Use
  Company Number: PHHY2011US04760

PATIENT
  Sex: Female

DRUGS (1)
  1. NEORAL [Suspect]
     Dosage: 100 MG, 2 CAPSULES AM, 1 CAPSULE PM
     Route: 048
     Dates: start: 20101007

REACTIONS (3)
  - SUICIDAL IDEATION [None]
  - STRESS [None]
  - RASH PRURITIC [None]
